FAERS Safety Report 9995688 (Version 1)
Quarter: 2014Q1

REPORT INFORMATION
  Report Type: Spontaneous
  Country: US (occurrence: US)
  Receive Date: 20140311
  Receipt Date: 20140311
  Transmission Date: 20141002
  Serious: No
  Sender: FDA-Public Use
  Company Number: US-GALDERMA-US13002994

PATIENT
  Sex: Female

DRUGS (1)
  1. TRI-LUMA CREAM (FLUOCINOLONE ACETONIDE 0.01%, HYDROQUINONE 4%, TRETINO [Suspect]
     Route: 061
     Dates: start: 20130920

REACTIONS (1)
  - Drug ineffective [Not Recovered/Not Resolved]
